FAERS Safety Report 4429353-5 (Version None)
Quarter: 2004Q3

REPORT INFORMATION
  Report Type: 
  Country: None (occurrence: None)
  Receive Date: 20040816
  Receipt Date: 20040803
  Transmission Date: 20050211
  Serious: Yes (Death)
  Sender: FDA-Public Use
  Company Number: 2004-BP-06415RO

PATIENT

DRUGS (2)
  1. METHADONE HCL [Suspect]
     Dosage: NR (NR), NR
     Route: 065
  2. . [Concomitant]

REACTIONS (1)
  - DEATH [None]
